FAERS Safety Report 7429603-7 (Version None)
Quarter: 2011Q2

REPORT INFORMATION
  Report Type: 
  Country: None (occurrence: None)
  Receive Date: 20110421
  Receipt Date: 20110321
  Transmission Date: 20111010
  Serious: Yes (Other)
  Sender: FDA-Public Use
  Company Number: B0707793A

PATIENT
  Sex: Female

DRUGS (1)
  1. FLIXOTIDE [Suspect]
     Indication: ASTHMA
     Route: 055

REACTIONS (4)
  - FATIGUE [None]
  - MALAISE [None]
  - ADRENAL SUPPRESSION [None]
  - ADDISON'S DISEASE [None]
